FAERS Safety Report 12247340 (Version 2)
Quarter: 2016Q2

REPORT INFORMATION
  Report Type: Spontaneous
  Country: GR (occurrence: GR)
  Receive Date: 20160407
  Receipt Date: 20160506
  Transmission Date: 20160815
  Serious: Yes (Hospitalization, Other)
  Sender: FDA-Public Use
  Company Number: GR-PFIZER INC-2016188059

PATIENT
  Age: 53 Year
  Sex: Female

DRUGS (3)
  1. NEBIVOLOL. [Concomitant]
     Active Substance: NEBIVOLOL
     Dosage: 5.5 UNK, 1X/DAY
  2. HYDROCHLOROTHIAZIDE/QUINAPRIL HYDROCHLORIDE [Suspect]
     Active Substance: HYDROCHLOROTHIAZIDE\QUINAPRIL HYDROCHLORIDE
     Dosage: 20/12.5, 2X/DAY
  3. NIFEDIPINE CR [Concomitant]
     Active Substance: NIFEDIPINE
     Dosage: 30 UNK, 2X/DAY

REACTIONS (4)
  - Acute myocardial infarction [Unknown]
  - Takayasu^s arteritis [Unknown]
  - Ischaemic stroke [Unknown]
  - Blood pressure increased [Recovered/Resolved]

NARRATIVE: CASE EVENT DATE: 201301
